FAERS Safety Report 5053619-1 (Version None)
Quarter: 2006Q3

REPORT INFORMATION
  Report Type: 
  Country: None (occurrence: None)
  Receive Date: 20060718
  Receipt Date: 20060627
  Transmission Date: 20061208
  Serious: Yes (Hospitalization)
  Sender: FDA-Public Use
  Company Number: PHBS2006JP09774

PATIENT
  Age: 84 Year

DRUGS (1)
  1. LUDIOMIL [Suspect]
     Route: 048

REACTIONS (3)
  - BLADDER INJURY [None]
  - DYSURIA [None]
  - SPINAL COMPRESSION FRACTURE [None]
